FAERS Safety Report 24292125 (Version 1)
Quarter: 2024Q3

REPORT INFORMATION
  Report Type: Spontaneous
  Country: US (occurrence: None)
  Receive Date: 20240906
  Receipt Date: 20240906
  Transmission Date: 20241016
  Serious: No
  Sender: DOMPE FARMACEUTICI
  Company Number: US-FARMAPROD-202308-202307-2153

PATIENT
  Sex: Female

DRUGS (10)
  1. OXERVATE [Suspect]
     Active Substance: CENEGERMIN-BKBJ
     Indication: Neurotrophic keratopathy
     Route: 047
     Dates: start: 20230620, end: 20230821
  2. OXERVATE [Suspect]
     Active Substance: CENEGERMIN-BKBJ
     Route: 047
     Dates: start: 20231127
  3. OXERVATE [Suspect]
     Active Substance: CENEGERMIN-BKBJ
  4. LATISSE [Concomitant]
     Active Substance: BIMATOPROST
     Dosage: WITH APPLICATOR
  5. SYSTANE COMPLETE PF [Concomitant]
     Active Substance: PROPYLENE GLYCOL
  6. VYVANSE [Concomitant]
     Active Substance: LISDEXAMFETAMINE DIMESYLATE
  7. PROGESTERONE [Concomitant]
     Active Substance: PROGESTERONE
  8. SPIRONOLACTONE [Concomitant]
     Active Substance: SPIRONOLACTONE
  9. CEQUA [Concomitant]
     Active Substance: CYCLOSPORINE
  10. CELEBREX [Concomitant]
     Active Substance: CELECOXIB

REACTIONS (3)
  - Eye pain [Not Recovered/Not Resolved]
  - Hordeolum [Unknown]
  - Madarosis [Unknown]
